FAERS Safety Report 23665114 (Version 1)
Quarter: 2024Q1

REPORT INFORMATION
  Report Type: Spontaneous
  Country: US (occurrence: US)
  Receive Date: 20240322
  Receipt Date: 20240322
  Transmission Date: 20240410
  Serious: No
  Sender: FDA-Public Use
  Company Number: US-JNJFOC-20240314376

PATIENT
  Age: 70 Year
  Sex: Female

DRUGS (30)
  1. ZYRTEC [Suspect]
     Active Substance: CETIRIZINE HYDROCHLORIDE
     Indication: Pruritus
     Route: 065
     Dates: start: 2023
  2. TYLENOL [Concomitant]
     Active Substance: ACETAMINOPHEN
     Indication: Headache
     Route: 065
  3. SPIRONOLACTONE [Concomitant]
     Active Substance: SPIRONOLACTONE
     Indication: Product used for unknown indication
     Route: 065
  4. ATENOLOL [Concomitant]
     Active Substance: ATENOLOL
     Indication: Product used for unknown indication
     Route: 065
  5. POTASSIUM [Concomitant]
     Active Substance: POTASSIUM
     Indication: Product used for unknown indication
     Route: 065
  6. TORSEMIDE [Concomitant]
     Active Substance: TORSEMIDE
     Indication: Product used for unknown indication
     Route: 065
  7. PRAVASTATIN SODIUM [Concomitant]
     Active Substance: PRAVASTATIN SODIUM
     Indication: Product used for unknown indication
     Route: 065
  8. JARDIANCE [Concomitant]
     Active Substance: EMPAGLIFLOZIN
     Indication: Product used for unknown indication
     Route: 065
  9. CALCIUM [Concomitant]
     Active Substance: CALCIUM
     Indication: Product used for unknown indication
     Route: 065
  10. MAGNESIUM [Concomitant]
     Active Substance: MAGNESIUM
     Indication: Product used for unknown indication
     Route: 065
  11. DILTIAZEM HYDROCHLORIDE [Concomitant]
     Active Substance: DILTIAZEM HYDROCHLORIDE
     Indication: Product used for unknown indication
     Route: 065
  12. TRADJENTA [Concomitant]
     Active Substance: LINAGLIPTIN
     Indication: Product used for unknown indication
     Route: 065
  13. VITAMIN D3 [Concomitant]
     Active Substance: CHOLECALCIFEROL
     Indication: Product used for unknown indication
     Route: 065
  14. ATORVASTATIN CALCIUM [Concomitant]
     Active Substance: ATORVASTATIN CALCIUM
     Indication: Product used for unknown indication
     Route: 065
  15. ORENITRAM [Concomitant]
     Active Substance: TREPROSTINIL
     Indication: Pulmonary arterial hypertension
     Dosage: ORENITRAM REGIMEN # 2
     Route: 048
     Dates: start: 202308, end: 202308
  16. ORENITRAM [Concomitant]
     Active Substance: TREPROSTINIL
     Dosage: ORENITRAM REGIMEN # 3
     Route: 048
     Dates: start: 2023, end: 2023
  17. ORENITRAM [Concomitant]
     Active Substance: TREPROSTINIL
     Dosage: ORENITRAM REGIMEN # 4
     Route: 048
     Dates: start: 2023, end: 2023
  18. ORENITRAM [Concomitant]
     Active Substance: TREPROSTINIL
     Dosage: 1 ORENITRAM REGIMEN # 5
     Route: 048
     Dates: start: 2023, end: 2023
  19. ORENITRAM [Concomitant]
     Active Substance: TREPROSTINIL
     Dosage: ORENITRAM REGIMEN # 6
     Route: 048
     Dates: start: 2023
  20. ORENITRAM [Concomitant]
     Active Substance: TREPROSTINIL
     Dosage: ORENITRAM REGIMEN # 7
     Route: 048
  21. ORENITRAM [Concomitant]
     Active Substance: TREPROSTINIL
     Dosage: ORENITRAM REGIMEN # 8
     Route: 048
  22. ORENITRAM [Concomitant]
     Active Substance: TREPROSTINIL
     Dosage: ORENITRAM REGIMEN # 9
     Route: 048
  23. ORENITRAM [Concomitant]
     Active Substance: TREPROSTINIL
     Dosage: ORENITRAM REGIMEN #10
     Route: 048
     Dates: start: 20230808
  24. ORENITRAM [Concomitant]
     Active Substance: TREPROSTINIL
     Dosage: ORENITRAM REGIMEN # 2
     Route: 048
  25. ORENITRAM [Concomitant]
     Active Substance: TREPROSTINIL
     Dosage: ORENITRAM REGIMEN # 3
     Route: 048
  26. ORENITRAM [Concomitant]
     Active Substance: TREPROSTINIL
     Dosage: ORENITRAM REGIMEN # 2
     Route: 048
  27. ORENITRAM [Concomitant]
     Active Substance: TREPROSTINIL
     Dosage: ORENITRAM REGIMEN # 3
     Route: 048
  28. ORENITRAM [Concomitant]
     Active Substance: TREPROSTINIL
     Route: 048
     Dates: start: 202308, end: 202308
  29. ORENITRAM [Concomitant]
     Active Substance: TREPROSTINIL
     Route: 048
  30. ORENITRAM [Concomitant]
     Active Substance: TREPROSTINIL
     Route: 048

REACTIONS (1)
  - Product use in unapproved indication [Unknown]

NARRATIVE: CASE EVENT DATE: 20230101
